FAERS Safety Report 6648100-X (Version None)
Quarter: 2010Q1

REPORT INFORMATION
  Report Type: 
  Country: None (occurrence: None)
  Receive Date: 20100319
  Receipt Date: 20100304
  Transmission Date: 20100710
  Serious: Yes (Hospitalization)
  Sender: FDA-Public Use
  Company Number: 237075K09USA

PATIENT
  Age: 39 Year
  Sex: Female
  Weight: 103 kg

DRUGS (3)
  1. REBIF [Suspect]
     Indication: MULTIPLE SCLEROSIS
     Dosage: 44 MCG, 3 IN 1 WEEKS, SUBCUTANEOUS
     Route: 058
     Dates: start: 20051109, end: 20090311
  2. REBIF [Suspect]
     Indication: MULTIPLE SCLEROSIS
     Dosage: 44 MCG, 3 IN 1 WEEKS, SUBCUTANEOUS
     Route: 058
     Dates: start: 20090501
  3. ORAL BIRTH CONTROL (ALL OTHER THERAPEUTIC PRODUCTS) [Concomitant]

REACTIONS (14)
  - BILE DUCT STONE [None]
  - BILIARY TRACT DISORDER [None]
  - BONE PAIN [None]
  - CHEST PAIN [None]
  - CHOLECYSTITIS INFECTIVE [None]
  - CHOLELITHIASIS [None]
  - DYSPEPSIA [None]
  - GANGRENE [None]
  - HEPATIC FUNCTION ABNORMAL [None]
  - MULTIPLE SCLEROSIS RELAPSE [None]
  - MUSCULOSKELETAL PAIN [None]
  - PAIN IN EXTREMITY [None]
  - THROMBOSIS [None]
  - WEIGHT DECREASED [None]
